FAERS Safety Report 8845723 (Version 1)
Quarter: 2012Q4

REPORT INFORMATION
  Report Type: 
  Country: US (occurrence: US)
  Receive Date: 20121017
  Receipt Date: 20121017
  Transmission Date: 20130627
  Serious: No
  Sender: FDA-Public Use
  Company Number: US-ASTRAZENECA-2012SE72521

PATIENT
  Sex: Female

DRUGS (4)
  1. ENTOCORT EC [Suspect]
     Indication: COLITIS
     Route: 048
     Dates: start: 201206
  2. ENTOCORT EC [Suspect]
     Indication: COLITIS
     Route: 048
  3. ENTOCORT EC [Suspect]
     Indication: COLITIS
     Route: 048
  4. VERAPAMIL [Concomitant]
     Indication: BLOOD PRESSURE ABNORMAL

REACTIONS (9)
  - Urinary tract infection [Recovered/Resolved]
  - Rhinorrhoea [Unknown]
  - Fatigue [Unknown]
  - Blood glucose increased [Unknown]
  - Paraesthesia [Unknown]
  - Arthritis [Unknown]
  - Joint swelling [Unknown]
  - Intentional drug misuse [Unknown]
  - Off label use [Unknown]
